FAERS Safety Report 5612953-4 (Version None)
Quarter: 2008Q1

REPORT INFORMATION
  Report Type: 
  Country: None (occurrence: None)
  Receive Date: 20080204
  Receipt Date: 20080123
  Transmission Date: 20080703
  Serious: Yes (Life-Threatening, Hospitalization)
  Sender: FDA-Public Use
  Company Number: US-PFIZER INC-2006017551

PATIENT
  Sex: Female
  Weight: 50.6 kg

DRUGS (15)
  1. SUTENT [Suspect]
     Indication: NON-SMALL CELL LUNG CANCER
     Route: 048
     Dates: start: 20060105, end: 20060126
  2. MICRONASE [Concomitant]
     Route: 048
     Dates: start: 19850101, end: 20060128
  3. SYNTHROID [Concomitant]
     Dosage: TEXT:UNKNOWN-FREQ:UNKNOWN
     Route: 048
  4. PREMARIN [Concomitant]
     Indication: MENOPAUSAL SYMPTOMS
     Dosage: TEXT:UNKNOWN-FREQ:UNKNOWN
     Route: 048
  5. POTASSIUM CHLORIDE [Concomitant]
     Dosage: TEXT:UNKNOWN-FREQ:UNKNOWN
     Route: 048
  6. VITAMIN CAP [Concomitant]
     Dosage: TEXT:UNKNOWN-FREQ:UNKNOWN
     Route: 048
  7. ASPIRIN [Concomitant]
     Dosage: TEXT:UNKNOWN-FREQ:UNKNOWN
     Route: 048
  8. TESSALON [Concomitant]
     Indication: COUGH
     Dosage: TEXT:UNKNOWN-FREQ:UNKNOWN
     Route: 048
  9. ALBUTEROL [Concomitant]
     Dosage: TEXT:UNKNOWN-FREQ:UNKNOWN
     Route: 055
  10. SPIRIVA [Concomitant]
     Dosage: TEXT:UNKNOWN-FREQ:UNKNOWN
     Route: 055
  11. LOPRESSOR [Concomitant]
     Dosage: TEXT:UNKNOWN-FREQ:UNKNOWN
     Route: 048
  12. ALTACE [Concomitant]
     Route: 048
     Dates: start: 20000101, end: 20060125
  13. ALTACE [Concomitant]
     Route: 048
  14. LOPERAMIDE HCL [Concomitant]
     Indication: DIARRHOEA
     Dosage: TEXT:UNKNOWN-FREQ:UNKNOWN
     Route: 048
  15. FUROSEMIDE [Concomitant]
     Route: 048

REACTIONS (1)
  - RESPIRATORY FAILURE [None]
